FAERS Safety Report 6518357-4 (Version None)
Quarter: 2009Q4

REPORT INFORMATION
  Report Type: 
  Country: None (occurrence: None)
  Receive Date: 20091224
  Receipt Date: 20091125
  Transmission Date: 20100525
  Serious: No
  Sender: FDA-Public Use
  Company Number: US-BAYER-200941106NA

PATIENT
  Age: 52 Year
  Sex: Female
  Weight: 54 kg

DRUGS (1)
  1. CLIMARA [Suspect]
     Indication: MENOPAUSAL SYMPTOMS
     Dosage: CONTINUOUS DELIVERY FOR ONCE WEEKLY APPLICATION
     Route: 062

REACTIONS (1)
  - RASH [None]
